FAERS Safety Report 4707857-5 (Version None)
Quarter: 2005Q3

REPORT INFORMATION
  Report Type: 
  Country: None (occurrence: None)
  Receive Date: 20050705
  Receipt Date: 20050705
  Transmission Date: 20060218
  Serious: No
  Sender: FDA-Public Use
  Company Number: None

PATIENT
  Age: 33 Year
  Sex: Female

DRUGS (1)
  1. VISIPAQUE 320 [Suspect]
     Indication: SCAN BRAIN
     Dosage: 320 MG   INTRAVENOU
     Route: 042
     Dates: start: 20050525, end: 20050525

REACTIONS (1)
  - PRURITUS [None]
